FAERS Safety Report 16813235 (Version 1)
Quarter: 2019Q3

REPORT INFORMATION
  Report Type: Report from Study
  Country: GB (occurrence: GB)
  Receive Date: 20190916
  Receipt Date: 20190916
  Transmission Date: 20191005
  Serious: Yes (Death, Hospitalization, Other)
  Sender: FDA-Public Use
  Company Number: PHHO2019GB008970

PATIENT
  Age: 65 Year
  Sex: Female

DRUGS (4)
  1. KISQALI [Suspect]
     Active Substance: RIBOCICLIB
     Indication: BREAST CANCER METASTATIC
     Dosage: UNK
     Route: 048
     Dates: start: 20180920
  2. DEXAMETHASONE. [Concomitant]
     Active Substance: DEXAMETHASONE
     Indication: PRODUCT USED FOR UNKNOWN INDICATION
     Dosage: 8 MG, BID
     Route: 065
  3. HEPARIN [Concomitant]
     Active Substance: HEPARIN SODIUM
     Indication: PRODUCT USED FOR UNKNOWN INDICATION
     Route: 065
  4. LETROZOLE. [Suspect]
     Active Substance: LETROZOLE
     Indication: BREAST CANCER
     Dosage: UNK
     Route: 065
     Dates: start: 20180920

REACTIONS (34)
  - Rash [Unknown]
  - Alopecia [Unknown]
  - Abdominal pain [Unknown]
  - Dyspnoea [Unknown]
  - Fatigue [Unknown]
  - Stomatitis [Unknown]
  - Death [Fatal]
  - Superior vena cava occlusion [Unknown]
  - Vomiting [Unknown]
  - Activated partial thromboplastin time prolonged [Unknown]
  - Urinary tract infection [Unknown]
  - Swelling face [Not Recovered/Not Resolved]
  - Decreased appetite [Unknown]
  - Cheilitis [Unknown]
  - Pyrexia [Unknown]
  - Blood glucose abnormal [Unknown]
  - Blood creatinine increased [Unknown]
  - Lipase increased [Unknown]
  - Blood calcium decreased [Unknown]
  - Pruritus [Unknown]
  - Diarrhoea [Unknown]
  - Weight decreased [Unknown]
  - Dyspepsia [Unknown]
  - Back pain [Unknown]
  - Nasal dryness [Unknown]
  - Headache [Unknown]
  - Dry skin [Unknown]
  - Alanine aminotransferase increased [Unknown]
  - Peripheral swelling [Unknown]
  - Gamma-glutamyltransferase increased [Unknown]
  - Nausea [Unknown]
  - Taste disorder [Unknown]
  - Lymphocyte count decreased [Unknown]
  - Haemoglobin decreased [Unknown]

NARRATIVE: CASE EVENT DATE: 20190430
